FAERS Safety Report 15218407 (Version 2)
Quarter: 2018Q4

REPORT INFORMATION
  Report Type: Spontaneous
  Country: FR (occurrence: FR)
  Receive Date: 20180730
  Receipt Date: 20180813
  Transmission Date: 20190204
  Serious: Yes (Hospitalization)
  Sender: FDA-Public Use
  Company Number: PHHY2018FR056811

PATIENT
  Age: 75 Year
  Sex: Female
  Weight: 68 kg

DRUGS (19)
  1. PHOSPHONEUROS [Suspect]
     Active Substance: CALCIUM PHOSPHATE, DIBASIC, ANHYDROUS\MAGNESIUM GLYCEROPHOSPHATE\PHOSPHORIC ACID\SODIUM PHOSPHATE, DIBASIC
     Indication: PRODUCT USED FOR UNKNOWN INDICATION
     Dosage: 200 GTT, QD (ONCE A DAY)
     Route: 048
     Dates: start: 20180328, end: 20180412
  2. CALCIDOSE VITAMINE D [Suspect]
     Active Substance: CALCIUM\CHOLECALCIFEROL
     Indication: PRODUCT USED FOR UNKNOWN INDICATION
     Dosage: 2 DF (2 UG/LITRE), QD (ONCE A DAY)
     Route: 048
     Dates: start: 20180328, end: 20180410
  3. UMULINE [Concomitant]
     Active Substance: INSULIN HUMAN
     Indication: PRODUCT USED FOR UNKNOWN INDICATION
     Dosage: UNK
     Route: 065
  4. CERNEVIT [Concomitant]
     Active Substance: VITAMINS
     Indication: PRODUCT USED FOR UNKNOWN INDICATION
     Dosage: UNK
     Route: 065
  5. ULTRAPROCT (CLEMIZOLE\DIBUCAINE\FLUOCORTOLONE\HEXACHLOROPHENE) [Suspect]
     Active Substance: CLEMIZOLE\DIBUCAINE\FLUOCORTOLONE\HEXACHLOROPHENE
     Indication: HAEMORRHOIDS
     Dosage: 2 DF (2 UG/LITRE), QD (ONCE A DAY)
     Route: 061
     Dates: start: 20180328, end: 20180413
  6. VFEND [Suspect]
     Active Substance: VORICONAZOLE
     Indication: INFECTION
     Dosage: 600 MG, QD (ONCE A DAY)
     Route: 042
     Dates: start: 20180405, end: 20180410
  7. PHLOROGLUCINOL [Concomitant]
     Active Substance: PHLOROGLUCINOL
     Indication: PRODUCT USED FOR UNKNOWN INDICATION
     Dosage: UNK
     Route: 065
  8. TRIMEBUTINE [Concomitant]
     Active Substance: TRIMEBUTINE
     Indication: PRODUCT USED FOR UNKNOWN INDICATION
     Dosage: UNK
     Route: 065
  9. FUROSEMIDE. [Concomitant]
     Active Substance: FUROSEMIDE
     Indication: PRODUCT USED FOR UNKNOWN INDICATION
     Dosage: UNK
     Route: 065
  10. VANCOMYCIN SANDOZ [Suspect]
     Active Substance: VANCOMYCIN
     Indication: INFECTION
     Dosage: 3 G, QD (ONCE A DAY)
     Route: 042
     Dates: start: 20180405, end: 20180412
  11. ATORVASTATIN ARROW [Suspect]
     Active Substance: ATORVASTATIN CALCIUM
     Indication: DYSLIPIDAEMIA
     Dosage: 1 DF (1 UG/LITRE), QD (ONCE A DAY)
     Route: 048
     Dates: start: 20180317, end: 20180411
  12. IMIPENEM AND CILASTATIN [Suspect]
     Active Substance: CILASTATIN SODIUM\IMIPENEM
     Dosage: 500 MG, QD
     Route: 042
     Dates: start: 20180331, end: 20180413
  13. IMOVANE [Suspect]
     Active Substance: ZOPICLONE
     Indication: PRODUCT USED FOR UNKNOWN INDICATION
     Dosage: 1 DF (16 UG/LITRE), QD (ONCE A DAY)
     Route: 048
     Dates: start: 20180324, end: 20180410
  14. TIORFAN [Suspect]
     Active Substance: RACECADOTRIL
     Indication: DIARRHOEA
     Dosage: 3 DF (3 UG/LITRE), QD (ONCE A DAY)
     Route: 048
     Dates: start: 20180328, end: 20180411
  15. NUTRILYTE [Concomitant]
     Active Substance: CALCIUM ACETATE\MAGNESIUM ACETATE\POTASSIUM ACETATE\POTASSIUM CHLORIDE\SODIUM ACETATE\SODIUM GLUCONATE
     Indication: PRODUCT USED FOR UNKNOWN INDICATION
     Dosage: UNK
     Route: 065
  16. IMIPENEM AND CILASTATIN [Suspect]
     Active Substance: CILASTATIN SODIUM\IMIPENEM
     Indication: INFECTION
     Dosage: 2000 MG, QD (ONCE A DAY)
     Route: 042
     Dates: start: 20180331, end: 20180413
  17. DIOSMECTITE [Suspect]
     Active Substance: MONTMORILLONITE
     Indication: DIARRHOEA
     Dosage: 3 DF (3 UG/LITRE), QD (ONCE A DAY)
     Route: 048
     Dates: start: 20180328, end: 20180412
  18. PHOSPHONEUROS [Suspect]
     Active Substance: CALCIUM PHOSPHATE, DIBASIC, ANHYDROUS\MAGNESIUM GLYCEROPHOSPHATE\PHOSPHORIC ACID\SODIUM PHOSPHATE, DIBASIC
     Dosage: 100 GTT, QD
     Route: 048
     Dates: start: 20180328, end: 20180412
  19. VITAMIN K [Concomitant]
     Active Substance: PHYTONADIONE
     Indication: PRODUCT USED FOR UNKNOWN INDICATION
     Dosage: UNK
     Route: 065

REACTIONS (1)
  - Confusional state [Recovered/Resolved]

NARRATIVE: CASE EVENT DATE: 20180409
